FAERS Safety Report 11592245 (Version 1)
Quarter: 2015Q4

REPORT INFORMATION
  Report Type: Spontaneous
  Country: US (occurrence: US)
  Receive Date: 20151005
  Receipt Date: 20151005
  Transmission Date: 20160304
  Serious: No
  Sender: FDA-Public Use
  Company Number: US-BRISTOL-MYERS SQUIBB COMPANY-BMS-2015-065256

PATIENT
  Sex: Female
  Weight: 112 kg

DRUGS (2)
  1. COUMADIN [Suspect]
     Active Substance: WARFARIN SODIUM
     Indication: ATRIAL FIBRILLATION
     Dosage: 2.5 MG, BID
     Route: 065
  2. WARFARIN [Suspect]
     Active Substance: WARFARIN
     Indication: ATRIAL FIBRILLATION
     Route: 065

REACTIONS (7)
  - Erythema [Unknown]
  - Nausea [Unknown]
  - Arthralgia [Unknown]
  - Skin burning sensation [Unknown]
  - Headache [Unknown]
  - Contusion [Unknown]
  - Drug ineffective [Unknown]
